FAERS Safety Report 21887942 (Version 1)
Quarter: 2023Q1

REPORT INFORMATION
  Report Type: Spontaneous
  Country: US (occurrence: US)
  Receive Date: 20230120
  Receipt Date: 20230120
  Transmission Date: 20230418
  Serious: Yes (Other)
  Sender: FDA-Public Use
  Company Number: US-MLMSERVICE-20230109-4032596-1

PATIENT
  Age: 23 Year
  Sex: Female

DRUGS (9)
  1. DECITABINE [Suspect]
     Active Substance: DECITABINE
     Indication: Chloroma
     Dosage: UNK, 2 CYCLES
     Route: 065
  2. DECITABINE [Suspect]
     Active Substance: DECITABINE
     Indication: Refractory cancer
  3. TACROLIMUS [Suspect]
     Active Substance: TACROLIMUS
     Indication: Immunosuppressant drug therapy
     Dosage: UNK
     Route: 065
  4. TACROLIMUS [Suspect]
     Active Substance: TACROLIMUS
     Dosage: UNK, LOWER DOSE
     Route: 065
  5. PREDNISONE [Suspect]
     Active Substance: PREDNISONE
     Indication: Immunosuppressant drug therapy
     Dosage: UNK
     Route: 065
  6. PREDNISONE [Suspect]
     Active Substance: PREDNISONE
     Dosage: UNK, RESTARTED
     Route: 065
  7. PREDNISONE [Suspect]
     Active Substance: PREDNISONE
     Dosage: UNK, LOW DOSE
     Route: 065
  8. VENETOCLAX [Concomitant]
     Active Substance: VENETOCLAX
     Indication: Chloroma
     Dosage: UNK
     Route: 065
  9. VENETOCLAX [Concomitant]
     Active Substance: VENETOCLAX
     Indication: Refractory cancer

REACTIONS (2)
  - Soft tissue sarcoma [Unknown]
  - Epstein-Barr viraemia [Unknown]
